FAERS Safety Report 18146781 (Version 1)
Quarter: 2020Q3

REPORT INFORMATION
  Report Type: Spontaneous
  Country: DE (occurrence: DE)
  Receive Date: 20200813
  Receipt Date: 20200813
  Transmission Date: 20201103
  Serious: Yes (Hospitalization)
  Sender: FDA-Public Use
  Company Number: NVSC2020DE221709

PATIENT
  Age: 80 Year
  Sex: Male
  Weight: 74 kg

DRUGS (15)
  1. ENTRESTO [Suspect]
     Active Substance: SACUBITRIL\VALSARTAN
     Indication: PRODUCT USED FOR UNKNOWN INDICATION
     Dosage: 1 DF, Q12H (24.3/25.7 MG, 1?0?1?0, TABLETTEN)
     Route: 048
  2. ZOPICLON [Concomitant]
     Active Substance: ZOPICLONE
     Indication: PRODUCT USED FOR UNKNOWN INDICATION
     Dosage: 7.5 MG, QD ( 0?0?1?0, TABLETTEN)
     Route: 048
  3. INSULIN ASPART [Concomitant]
     Active Substance: INSULIN ASPART
     Indication: PRODUCT USED FOR UNKNOWN INDICATION
     Dosage: UNK (300 E/3ML, 6?2?4?0, FERTIGSPRITZEN)
     Route: 058
  4. METOPROLOL. [Concomitant]
     Active Substance: METOPROLOL
     Indication: PRODUCT USED FOR UNKNOWN INDICATION
     Dosage: 1.5 DF, QD (95 MG, 1?0?0.5?0, RETARD?TABLETTEN)
     Route: 048
  5. GABAPENTIN. [Concomitant]
     Active Substance: GABAPENTIN
     Indication: PRODUCT USED FOR UNKNOWN INDICATION
     Dosage: 300 MG, (1?0?1?0, KAPSELN)
     Route: 048
  6. KALIUMCITRAT [Concomitant]
     Active Substance: POTASSIUM CITRATE
     Indication: PRODUCT USED FOR UNKNOWN INDICATION
     Dosage: 1 DF, QD (2157.3 MG, 1?0?0?0, BEUTEL)
     Route: 048
  7. APIXABAN [Concomitant]
     Active Substance: APIXABAN
     Indication: PRODUCT USED FOR UNKNOWN INDICATION
     Dosage: 2.5 MG, Q12H (1?0?1?0, TABLETTEN)
     Route: 048
  8. PANTOPRAZOL [Concomitant]
     Active Substance: PANTOPRAZOLE SODIUM
     Indication: PRODUCT USED FOR UNKNOWN INDICATION
     Dosage: 40 MG, QD (1?0?0?0, TABLETTEN)
     Route: 048
  9. FORMODUAL [Concomitant]
     Active Substance: BECLOMETHASONE DIPROPIONATE\FORMOTEROL FUMARATE
     Indication: PRODUCT USED FOR UNKNOWN INDICATION
     Dosage: UNK (100|6 ?G, BEDARF, DOSIERAEROSOL)
     Route: 055
  10. TORASEMIDE [Suspect]
     Active Substance: TORSEMIDE
     Indication: PRODUCT USED FOR UNKNOWN INDICATION
     Dosage: 30 MG, QD (20 MG 1?0?0.5?0, TABLETTEN)
     Route: 048
  11. INSULIN GLARGINE [Concomitant]
     Active Substance: INSULIN GLARGINE
     Indication: PRODUCT USED FOR UNKNOWN INDICATION
     Dosage: UNK (450 E/1.5ML, 0?0?16?0, FERTIGSPRITZEN)
     Route: 058
  12. METAMIZOLE [Suspect]
     Active Substance: METAMIZOLE
     Indication: PRODUCT USED FOR UNKNOWN INDICATION
     Dosage: 500 MG, Q6H (1?1?1?1, TABLETTEN)
     Route: 048
  13. SPIOLTO RESPIMAT [Concomitant]
     Active Substance: OLODATEROL HYDROCHLORIDE\TIOTROPIUM BROMIDE MONOHYDRATE
     Indication: PRODUCT USED FOR UNKNOWN INDICATION
     Dosage: 2 DF, QD (2.5|2.5 ?G, 2?0?0?0, DOSIERAEROSOL)
     Route: 055
  14. TAMSULOSIN [Concomitant]
     Active Substance: TAMSULOSIN
     Indication: PRODUCT USED FOR UNKNOWN INDICATION
     Dosage: 0.4 MG, QD (0?0?1?0, RETARD?TABLETTEN)
     Route: 048
  15. ROSUVASTATIN. [Concomitant]
     Active Substance: ROSUVASTATIN
     Indication: PRODUCT USED FOR UNKNOWN INDICATION
     Dosage: 20 MG, QD (0?0?1?0, TABLETTEN)
     Route: 048

REACTIONS (7)
  - Renal impairment [Unknown]
  - Pyrexia [Unknown]
  - Productive cough [Unknown]
  - Oedema peripheral [Unknown]
  - Localised infection [Unknown]
  - Dyspnoea [Unknown]
  - Cough [Unknown]
